FAERS Safety Report 4372323-6 (Version None)
Quarter: 2004Q2

REPORT INFORMATION
  Report Type: 
  Country: None (occurrence: None)
  Receive Date: 20040526
  Receipt Date: 20040511
  Transmission Date: 20050107
  Serious: Yes (Other)
  Sender: FDA-Public Use
  Company Number: S04-PRT-01934-01

PATIENT
  Age: 70 Year
  Sex: Female

DRUGS (10)
  1. CIPRALEX (ESCITALOPRAM) [Suspect]
     Indication: DEPRESSION
     Dosage: 5 MG BID PO
     Route: 048
     Dates: start: 20040316, end: 20040330
  2. CIPRALEX (ESCITALOPRAM) [Suspect]
     Indication: SUICIDAL IDEATION
     Dosage: 5 MG BID PO
     Route: 048
     Dates: start: 20040316, end: 20040330
  3. WARFARIN SODIUM [Suspect]
     Indication: ANTICOAGULANT THERAPY
     Dosage: 5 MG QD PO
     Route: 048
     Dates: start: 20010101, end: 20040329
  4. WARFARIN SODIUM [Suspect]
     Indication: ANTICOAGULANT THERAPY
     Dosage: 2.5 MG QD PO
     Route: 048
     Dates: start: 20040330
  5. PRAVACHOL [Concomitant]
  6. LASIX [Concomitant]
  7. LOPRESSOR [Concomitant]
  8. VASTAREL     BIOPHARMA  (TRIMETAZIDINE HYDROCHLORIDE) [Concomitant]
  9. SERMION (NICERGOLINE) [Concomitant]
  10. CORDARONE [Concomitant]

REACTIONS (8)
  - ANOREXIA [None]
  - ASTHENIA [None]
  - DIZZINESS [None]
  - DRUG INTERACTION [None]
  - HYPOCOAGULABLE STATE [None]
  - INTERNATIONAL NORMALISED RATIO INCREASED [None]
  - PROTHROMBIN LEVEL DECREASED [None]
  - TREMOR [None]
